FAERS Safety Report 9522167 (Version 2)
Quarter: 2014Q1

REPORT INFORMATION
  Report Type: Spontaneous
  Country: US (occurrence: None)
  Receive Date: 20130305
  Receipt Date: 20140306
  Transmission Date: 20141002
  Serious: Yes (Other)
  Sender: FDA-Public Use
  Company Number: 163-21880-12071704

PATIENT
  Age: 76 Year
  Sex: Female
  Weight: 65.32 kg

DRUGS (7)
  1. REVLIMID (LENALIDOMIDE) ( CAPSULES) [Suspect]
     Indication: PLASMA CELL MYELOMA
     Route: 048
     Dates: start: 20110516
  2. DECADRON (DEXAMETHASONE) [Concomitant]
  3. VELCADE [Concomitant]
  4. ACYCLOVIR (ACICLOVIR) (ACICLOVIR) [Concomitant]
  5. ASPIRIN (ACETYLSALICYLIC ACID) (ENTERIC-COATED TABLET) [Concomitant]
  6. METOPROLOL (METOPROLOL) [Concomitant]
  7. ZOMETA (ZOLEDRONIC ACID) [Concomitant]

REACTIONS (7)
  - Anaemia [None]
  - Drug dose omission [None]
  - Oedema peripheral [None]
  - Light chain analysis increased [None]
  - Fatigue [None]
  - Plasma cell myeloma [None]
  - No therapeutic response [None]
